FAERS Safety Report 4649374-7 (Version None)
Quarter: 2005Q2

REPORT INFORMATION
  Report Type: 
  Country: None (occurrence: None)
  Receive Date: 20050428
  Receipt Date: 20050428
  Transmission Date: 20051028
  Serious: No
  Sender: FDA-Public Use
  Company Number: None

PATIENT
  Age: 84 Year
  Sex: Male
  Weight: 84.369 kg

DRUGS (2)
  1. TENORMIN [Suspect]
     Indication: CORONARY ARTERY DISEASE
     Dosage: 12.5 MG DAILY
  2. TEQUIN [Suspect]
     Indication: URINARY TRACT INFECTION
     Dosage: 200 MG DAILY
     Dates: start: 20050421, end: 20050422

REACTIONS (2)
  - ELECTROCARDIOGRAM PR PROLONGATION [None]
  - ELECTROCARDIOGRAM QT CORRECTED INTERVAL PROLONGED [None]
